FAERS Safety Report 9461354 (Version 1)
Quarter: 2013Q3

REPORT INFORMATION
  Report Type: Spontaneous
  Country: US (occurrence: None)
  Receive Date: 20130814
  Receipt Date: 20130814
  Transmission Date: 20140515
  Serious: Yes (Life-Threatening, Hospitalization, Other)
  Sender: FDA-Public Use
  Company Number: None

PATIENT
  Age: 67 Year
  Sex: Male
  Weight: 99.79 kg

DRUGS (6)
  1. PHENTERMINE [Suspect]
     Indication: WEIGHT CONTROL
     Dosage: 37.5MG 1 PILL ONCE A DAY ONCE A DAY BY MOUTH
     Route: 048
     Dates: start: 20130305, end: 20130405
  2. ATENOLOL [Concomitant]
  3. HCTZ [Concomitant]
  4. CYMBALTA [Concomitant]
  5. BENICAR [Concomitant]
  6. PERCOCET [Concomitant]

REACTIONS (5)
  - Neuropathy peripheral [None]
  - Cyanosis [None]
  - Peripheral coldness [None]
  - Hyperhidrosis [None]
  - Peripheral vascular disorder [None]
